FAERS Safety Report 4850158-5 (Version None)
Quarter: 2005Q4

REPORT INFORMATION
  Report Type: 
  Country: None (occurrence: None)
  Receive Date: 20051123
  Receipt Date: 20050810
  Transmission Date: 20060501
  Serious: Yes (Hospitalization, Other)
  Sender: FDA-Public Use
  Company Number: 2005103112

PATIENT
  Age: 46 Year
  Sex: Male
  Weight: 88.4514 kg

DRUGS (6)
  1. LIPITOR [Suspect]
     Indication: HYPERCHOLESTEROLAEMIA
     Dosage: 10 MG (10 MG 1 IN 1 D) ORAL
     Route: 048
     Dates: start: 20050710, end: 20050715
  2. LIPITOR [Suspect]
     Indication: TYPE II HYPERLIPIDAEMIA
     Dosage: 10 MG (10 MG 1 IN 1 D) ORAL
     Route: 048
     Dates: start: 20050710, end: 20050715
  3. GLUCOTROL XL [Concomitant]
  4. ASPIRIN [Concomitant]
  5. GLUCOPHAGE [Concomitant]
  6. BENICAR [Concomitant]

REACTIONS (2)
  - HYPERSENSITIVITY [None]
  - LYMPHADENOPATHY [None]
